FAERS Safety Report 18876620 (Version 1)
Quarter: 2021Q1

REPORT INFORMATION
  Report Type: Spontaneous
  Country: US (occurrence: US)
  Receive Date: 20210210
  Receipt Date: 20210210
  Transmission Date: 20210420
  Serious: Yes (Hospitalization, Other)
  Sender: FDA-Public Use
  Company Number: US-PURDUE-USA-2020-0206041

PATIENT
  Sex: Female

DRUGS (2)
  1. OXYCONTIN [Suspect]
     Active Substance: OXYCODONE HYDROCHLORIDE
     Indication: PAIN
     Dosage: UNKNOWN DOSE
     Route: 048
  2. OXYCODONE HCL TABLETS (RHODES 91?490) [Suspect]
     Active Substance: OXYCODONE HYDROCHLORIDE
     Indication: PAIN
     Dosage: UNKNOWN DOSE
     Route: 048
     Dates: start: 2003

REACTIONS (5)
  - Drug abuse [Unknown]
  - Pain [Unknown]
  - Spinal operation [Unknown]
  - Drug withdrawal syndrome [Unknown]
  - Drug dependence [Unknown]

NARRATIVE: CASE EVENT DATE: 2018
